FAERS Safety Report 24703349 (Version 4)
Quarter: 2025Q3

REPORT INFORMATION
  Report Type: Report from Study
  Country: US (occurrence: US)
  Receive Date: 20241205
  Receipt Date: 20250809
  Transmission Date: 20251021
  Serious: Yes (Other)
  Sender: ALEXION PHARMACEUTICALS
  Company Number: US-AstraZeneca-CH-00761177A

PATIENT
  Sex: Female

DRUGS (2)
  1. NEXIUM [Suspect]
     Active Substance: ESOMEPRAZOLE MAGNESIUM
  2. TICAGRELOR [Suspect]
     Active Substance: TICAGRELOR
     Route: 065

REACTIONS (1)
  - Coronary artery occlusion [Unknown]
